FAERS Safety Report 4954557-2 (Version None)
Quarter: 2006Q1

REPORT INFORMATION
  Report Type: 
  Country: None (occurrence: None)
  Receive Date: 20060322
  Receipt Date: 20060306
  Transmission Date: 20060701
  Serious: Yes (Other)
  Sender: FDA-Public Use
  Company Number: 220002L06ESP

PATIENT
  Age: 21 Year
  Sex: Female

DRUGS (1)
  1. SOMATROPIN (SOMATROPIN) [Suspect]
     Indication: TURNER'S SYNDROME
     Dosage: 0.03 MG/KG, 1 IN 1 DAYS

REACTIONS (2)
  - AUTOIMMUNE THYROIDITIS [None]
  - PAPILLARY THYROID CANCER [None]
